FAERS Safety Report 24272531 (Version 1)
Quarter: 2024Q3

REPORT INFORMATION
  Report Type: Spontaneous
  Country: US (occurrence: US)
  Receive Date: 20240902
  Receipt Date: 20240902
  Transmission Date: 20241017
  Serious: No
  Sender: ABBVIE
  Company Number: US-ABBVIE-5896076

PATIENT
  Sex: Female

DRUGS (1)
  1. CREON [Suspect]
     Active Substance: PANCRELIPASE AMYLASE\PANCRELIPASE LIPASE\PANCRELIPASE PROTEASE
     Indication: Pancreatic failure
     Dosage: FORM STRENGTH: 24000 UNITS.
     Route: 048

REACTIONS (5)
  - Abdominal distension [Unknown]
  - Flatulence [Unknown]
  - Defaecation urgency [Unknown]
  - Gastrointestinal motility disorder [Unknown]
  - Drug ineffective [Not Recovered/Not Resolved]
